APPROVED DRUG PRODUCT: HALOPERIDOL DECANOATE
Active Ingredient: HALOPERIDOL DECANOATE
Strength: EQ 100MG BASE/ML
Dosage Form/Route: INJECTABLE;INJECTION
Application: A216730 | Product #002 | TE Code: AO
Applicant: MANKIND PHARMA LTD
Approved: May 23, 2023 | RLD: No | RS: Yes | Type: RX